FAERS Safety Report 15320625 (Version 1)
Quarter: 2018Q3

REPORT INFORMATION
  Report Type: Spontaneous
  Country: US (occurrence: US)
  Receive Date: 20180827
  Receipt Date: 20180827
  Transmission Date: 20181010
  Serious: Yes (Other)
  Sender: FDA-Public Use
  Company Number: US-ABBVIE-18K-163-2460955-00

PATIENT

DRUGS (1)
  1. HUMIRA [Suspect]
     Active Substance: ADALIMUMAB
     Indication: HIDRADENITIS
     Route: 058
     Dates: start: 20180731

REACTIONS (7)
  - Hyperhidrosis [Unknown]
  - Lip blister [Unknown]
  - Lip swelling [Unknown]
  - Mobility decreased [Unknown]
  - Muscular weakness [Unknown]
  - Deafness [Unknown]
  - Oral herpes [Unknown]

NARRATIVE: CASE EVENT DATE: 20180801
